FAERS Safety Report 5378911-2 (Version None)
Quarter: 2007Q3

REPORT INFORMATION
  Report Type: 
  Country: None (occurrence: None)
  Receive Date: 20070705
  Receipt Date: 20070625
  Transmission Date: 20080115
  Serious: Yes (Hospitalization, Disabling, Other)
  Sender: FDA-Public Use
  Company Number: FR-AMGEN-UK219808

PATIENT
  Age: 61 Year
  Sex: Female
  Weight: 60 kg

DRUGS (6)
  1. MIMPARA [Suspect]
     Indication: HYPERPARATHYROIDISM SECONDARY
     Route: 048
     Dates: start: 20050910, end: 20070301
  2. VALGANCICLOVIR HCL [Suspect]
     Route: 065
  3. NEORAL [Concomitant]
     Route: 065
     Dates: start: 20051119
  4. CORTANCYL [Concomitant]
     Route: 065
     Dates: start: 20051119
  5. NEXIUM [Concomitant]
     Route: 065
     Dates: start: 20051119
  6. PREVISCAN [Concomitant]
     Route: 065
     Dates: start: 20051119

REACTIONS (1)
  - NEUROPATHY PERIPHERAL [None]
